FAERS Safety Report 4852323-X (Version None)
Quarter: 2005Q4

REPORT INFORMATION
  Report Type: 
  Country: None (occurrence: None)
  Receive Date: 20051123
  Receipt Date: 20050321
  Transmission Date: 20060501
  Serious: Yes (Death)
  Sender: FDA-Public Use
  Company Number: US-JNJFOC-20050200912

PATIENT
  Age: 88 Year
  Sex: Female
  Weight: 66.6788 kg

DRUGS (6)
  1. LEVAQUIN [Suspect]
     Indication: PNEUMONIA
     Dosage: 750 MG, 1 IN 48 HOUR, INTRAVENOUS
     Route: 042
     Dates: start: 20050119
  2. NORPACE (DISOPHYRAMIDE PHOSPHATE) [Concomitant]
  3. VERAPAMIL SA (VERAPAMIL HYDROCHLORIDE) [Concomitant]
  4. ZESTRIL [Concomitant]
  5. FUROSEMIDE [Concomitant]
  6. PACKED CELLS (BLOOD CELLS, PACKED HUMAN) [Concomitant]

REACTIONS (1)
  - CARDIAC ARREST [None]
